FAERS Safety Report 7611981-7 (Version None)
Quarter: 2011Q3

REPORT INFORMATION
  Report Type: 
  Country: None (occurrence: None)
  Receive Date: 20110715
  Receipt Date: 20110707
  Transmission Date: 20111222
  Serious: Yes (Hospitalization)
  Sender: FDA-Public Use
  Company Number: US-JNJFOC-20110701561

PATIENT
  Sex: Male
  Weight: 55.2 kg

DRUGS (7)
  1. INFLIXIMAB, RECOMBINANT [Suspect]
     Route: 042
     Dates: start: 20110422
  2. CALCIUM CARBONATE [Concomitant]
  3. INFLIXIMAB, RECOMBINANT [Suspect]
     Indication: INFLAMMATORY BOWEL DISEASE
     Route: 042
  4. PROBIOTICS [Concomitant]
  5. PREDNISONE [Concomitant]
  6. INFLIXIMAB, RECOMBINANT [Suspect]
     Route: 042
     Dates: start: 20100106
  7. ZOFRAN [Concomitant]

REACTIONS (1)
  - GASTROENTERITIS VIRAL [None]
